FAERS Safety Report 18817724 (Version 1)
Quarter: 2021Q1

REPORT INFORMATION
  Report Type: Spontaneous
  Country: JP (occurrence: JP)
  Receive Date: 20210201
  Receipt Date: 20210201
  Transmission Date: 20210419
  Serious: Yes (Other)
  Sender: FDA-Public Use
  Company Number: NVSJ2021JP001338

PATIENT
  Sex: Male

DRUGS (1)
  1. NEORAL [Suspect]
     Active Substance: CYCLOSPORINE
     Indication: APLASIA PURE RED CELL
     Dosage: 175 MG, FOR 16 ~ 17 YEARS
     Route: 048

REACTIONS (4)
  - Arrhythmia [Unknown]
  - Diabetes mellitus [Unknown]
  - Dyspnoea [Unknown]
  - Product use in unapproved indication [Unknown]
